FAERS Safety Report 24094466 (Version 1)
Quarter: 2024Q3

REPORT INFORMATION
  Report Type: Spontaneous
  Country: US (occurrence: US)
  Receive Date: 20240716
  Receipt Date: 20240716
  Transmission Date: 20241016
  Serious: Yes (Death, Hospitalization, Other)
  Sender: LUPIN
  Company Number: US-LUPIN PHARMACEUTICALS INC.-2024-06018

PATIENT
  Age: 61 Year
  Sex: Female

DRUGS (5)
  1. METFORMIN [Suspect]
     Active Substance: METFORMIN HYDROCHLORIDE
     Indication: Product used for unknown indication
     Dosage: UNK
     Route: 065
  2. CALCIUM [Suspect]
     Active Substance: CALCIUM
     Indication: Cardiac arrest
     Dosage: UNK
     Route: 065
  3. TYLENOL [Suspect]
     Active Substance: ACETAMINOPHEN
     Indication: Sciatica
     Dosage: UNK
     Route: 065
     Dates: start: 20221021
  4. KETAMINE [Suspect]
     Active Substance: KETAMINE
     Indication: Pain management
     Dosage: UNK
     Route: 065
     Dates: start: 20221021
  5. IBUPROFEN [Concomitant]
     Active Substance: IBUPROFEN
     Indication: Sciatica
     Dosage: UNK
     Route: 065
     Dates: start: 20221021

REACTIONS (9)
  - Metabolic acidosis [Fatal]
  - Lactic acidosis [Fatal]
  - Toxicity to various agents [Fatal]
  - Renal failure [Fatal]
  - Cardiac arrest [Fatal]
  - Brain injury [Fatal]
  - Brain death [Fatal]
  - Cardiogenic shock [Fatal]
  - Off label use [Unknown]

NARRATIVE: CASE EVENT DATE: 20221001
